FAERS Safety Report 18081077 (Version 7)
Quarter: 2023Q2

REPORT INFORMATION
  Report Type: Spontaneous
  Country: US (occurrence: US)
  Receive Date: 20200728
  Receipt Date: 20230407
  Transmission Date: 20230722
  Serious: Yes (Other)
  Sender: FDA-Public Use
  Company Number: US-GILEAD-2020-0485182

PATIENT
  Age: 54 Year
  Sex: Female
  Weight: 63.5 kg

DRUGS (11)
  1. TRUVADA [Suspect]
     Active Substance: EMTRICITABINE\TENOFOVIR DISOPROXIL FUMARATE
     Indication: HIV infection
     Dosage: UNK
     Route: 048
     Dates: start: 2006, end: 2016
  2. TRUVADA [Suspect]
     Active Substance: EMTRICITABINE\TENOFOVIR DISOPROXIL FUMARATE
     Dosage: UNK
     Route: 048
     Dates: start: 201008, end: 2016
  3. VIREAD [Suspect]
     Active Substance: TENOFOVIR DISOPROXIL FUMARATE
     Indication: HIV infection
     Dosage: UNK
     Route: 048
     Dates: start: 2006, end: 2016
  4. VIREAD [Suspect]
     Active Substance: TENOFOVIR DISOPROXIL FUMARATE
     Dosage: UNK
     Route: 048
     Dates: start: 2016, end: 201702
  5. ATRIPLA [Suspect]
     Active Substance: EFAVIRENZ\EMTRICITABINE\TENOFOVIR DISOPROXIL FUMARATE
     Indication: HIV infection
     Dosage: UNK
     Route: 048
     Dates: start: 2006, end: 2007
  6. ATRIPLA [Suspect]
     Active Substance: EFAVIRENZ\EMTRICITABINE\TENOFOVIR DISOPROXIL FUMARATE
     Dosage: UNK
     Route: 048
     Dates: start: 2007, end: 2007
  7. SOVALDI [Suspect]
     Active Substance: SOFOSBUVIR
     Indication: Product used for unknown indication
     Route: 065
  8. TRIUMEQ [Concomitant]
     Active Substance: ABACAVIR SULFATE\DOLUTEGRAVIR SODIUM\LAMIVUDINE
  9. NORVIR [Concomitant]
     Active Substance: RITONAVIR
  10. REYATAZ [Concomitant]
     Active Substance: ATAZANAVIR SULFATE
  11. VEMLIDY [Concomitant]
     Active Substance: TENOFOVIR ALAFENAMIDE FUMARATE

REACTIONS (27)
  - Multiple fractures [Unknown]
  - Foot fracture [Recovered/Resolved]
  - Fall [Unknown]
  - Osteopenia [Not Recovered/Not Resolved]
  - Bone density decreased [Not Recovered/Not Resolved]
  - Pain [Not Recovered/Not Resolved]
  - Emotional distress [Not Recovered/Not Resolved]
  - Anxiety [Unknown]
  - Depression [Not Recovered/Not Resolved]
  - Anhedonia [Unknown]
  - Gait disturbance [Not Recovered/Not Resolved]
  - Mobility decreased [Not Recovered/Not Resolved]
  - Asthenia [Not Recovered/Not Resolved]
  - Sinusitis [Unknown]
  - Nasopharyngitis [Unknown]
  - Oropharyngeal pain [Unknown]
  - Rhinorrhoea [Unknown]
  - Somnolence [Unknown]
  - Fatigue [Unknown]
  - Headache [Unknown]
  - Nausea [Unknown]
  - Decreased appetite [Unknown]
  - Irritability [Unknown]
  - Myalgia [Unknown]
  - Malaise [Unknown]
  - Lipids abnormal [Recovered/Resolved]
  - Bone disorder [Unknown]

NARRATIVE: CASE EVENT DATE: 20120101
